FAERS Safety Report 9249428 (Version 2)
Quarter: 2013Q2

REPORT INFORMATION
  Report Type: Spontaneous
  Country: US (occurrence: US)
  Receive Date: 20130423
  Receipt Date: 20130503
  Transmission Date: 20140414
  Serious: Yes (Death, Hospitalization, Congenital Anomaly)
  Sender: FDA-Public Use
  Company Number: US-GLAXOSMITHKLINE-A1020780A

PATIENT
  Age: 0 Year
  Sex: Female
  Weight: 2.5 kg

DRUGS (1)
  1. PAXIL [Suspect]
     Indication: PRODUCT USED FOR UNKNOWN INDICATION
     Route: 064

REACTIONS (4)
  - Congenital diaphragmatic hernia [Fatal]
  - Polyhydramnios [Unknown]
  - Pulmonary hypoplasia [Unknown]
  - Foetal exposure during pregnancy [Unknown]
